FAERS Safety Report 12127893 (Version 12)
Quarter: 2016Q4

REPORT INFORMATION
  Report Type: Report from Study
  Country: None (occurrence: AT)
  Receive Date: 20160229
  Receipt Date: 20161108
  Transmission Date: 20170206
  Serious: Yes (Hospitalization)
  Sender: FDA-Public Use
  Company Number: AT-ABBVIE-16P-009-1556733-00

PATIENT
  Age: 75 Year
  Sex: Female
  Weight: 58 kg

DRUGS (6)
  1. EXVIERA [Suspect]
     Active Substance: DASABUVIR
     Indication: CHRONIC HEPATITIS C
     Route: 048
     Dates: start: 20160121, end: 20160303
  2. BERODUAL [Concomitant]
     Active Substance: FENOTEROL HYDROBROMIDE\IPRATROPIUM BROMIDE
     Indication: PRODUCT USED FOR UNKNOWN INDICATION
  3. ELOMEL ISOTON [Concomitant]
     Indication: PRODUCT USED FOR UNKNOWN INDICATION
  4. YOMOGI [Concomitant]
     Indication: PRODUCT USED FOR UNKNOWN INDICATION
  5. VIEKIRAX [Suspect]
     Active Substance: OMBITASVIR\PARITAPREVIR\RITONAVIR
     Indication: CHRONIC HEPATITIS C
     Dosage: 12.5MG/75MG/50MG
     Route: 048
     Dates: start: 20160121, end: 20160303
  6. LASIX [Suspect]
     Active Substance: FUROSEMIDE
     Indication: PRODUCT USED FOR UNKNOWN INDICATION
     Route: 048
     Dates: start: 20160229

REACTIONS (18)
  - Anxiety [Not Recovered/Not Resolved]
  - Diarrhoea [Unknown]
  - Bronchitis [Unknown]
  - Abdominal discomfort [Recovered/Resolved]
  - General physical health deterioration [Recovered/Resolved]
  - Bronchitis [Recovered/Resolved]
  - Fatigue [Recovered/Resolved]
  - Hypersensitivity [Recovered/Resolved]
  - Asthma [Recovered/Resolved]
  - Weight decreased [Recovered/Resolved]
  - Weight decreased [Recovered/Resolved]
  - Anxiety [Recovered/Resolved]
  - Cough [Recovered/Resolved]
  - Activities of daily living impaired [Recovered/Resolved]
  - Pulmonary oedema [Unknown]
  - Pulmonary oedema [Recovered/Resolved]
  - Diarrhoea [Recovered/Resolved]
  - Fatigue [Recovering/Resolving]

NARRATIVE: CASE EVENT DATE: 20160208
